FAERS Safety Report 24787717 (Version 1)
Quarter: 2024Q4

REPORT INFORMATION
  Report Type: Spontaneous
  Country: CN (occurrence: CN)
  Receive Date: 20241230
  Receipt Date: 20241230
  Transmission Date: 20250115
  Serious: Yes (Other)
  Sender: STRIDES
  Company Number: CN-STRIDES ARCOLAB LIMITED-2024SP017075

PATIENT
  Age: 7 Year
  Sex: Male

DRUGS (1)
  1. HYDROCORTISONE [Suspect]
     Active Substance: HYDROCORTISONE
     Indication: Adrenoleukodystrophy
     Dosage: 15 MILLIGRAM, QD
     Route: 048

REACTIONS (3)
  - Disease progression [Unknown]
  - Respiratory tract infection viral [Unknown]
  - Mycoplasma infection [Unknown]
